FAERS Safety Report 14071849 (Version 3)
Quarter: 2018Q3

REPORT INFORMATION
  Report Type: Spontaneous
  Country: US (occurrence: US)
  Receive Date: 20171010
  Receipt Date: 20180702
  Transmission Date: 20181010
  Serious: No
  Sender: FDA-Public Use
  Company Number: US-SA-2017SA139600

PATIENT
  Age: 30 Year
  Sex: Female

DRUGS (2)
  1. DUPIXENT [Suspect]
     Active Substance: DUPILUMAB
     Indication: ACNE
     Dosage: 300 MG,QOW
     Route: 058
     Dates: start: 201703
  2. DUPIXENT [Suspect]
     Active Substance: DUPILUMAB
     Indication: DERMATITIS ATOPIC

REACTIONS (6)
  - Eye pruritus [Unknown]
  - Ocular hyperaemia [Recovering/Resolving]
  - Injection site erythema [Recovered/Resolved]
  - Dry eye [Unknown]
  - Vision blurred [Not Recovered/Not Resolved]
  - Injection site dryness [Recovered/Resolved]

NARRATIVE: CASE EVENT DATE: 20170317
